FAERS Safety Report 19803485 (Version 2)
Quarter: 2021Q3

REPORT INFORMATION
  Report Type: Report from Study
  Country: NL (occurrence: NL)
  Receive Date: 20210908
  Receipt Date: 20210909
  Transmission Date: 20211014
  Serious: Yes (Hospitalization)
  Sender: FDA-Public Use
  Company Number: NL-SA-2020SA245775

PATIENT
  Age: 42 Year
  Sex: Male
  Weight: 67 kg

DRUGS (13)
  1. PRED FORTE [Concomitant]
     Active Substance: PREDNISOLONE ACETATE
     Indication: CYTOMEGALOVIRUS INFECTION
  2. ULTRACORTENOL [PREDNISOLONE ACETATE] [Concomitant]
     Indication: UVEITIS
     Dosage: UNK UNK, QD, OINTMENT
  3. DUPILUMAB [Suspect]
     Active Substance: DUPILUMAB
     Indication: DERMATITIS ATOPIC
     Dosage: 300 MG, QOW, 1X PER 2 WEEKS
     Dates: start: 20200225, end: 20200908
  4. TROPICAMIDE. [Concomitant]
     Active Substance: TROPICAMIDE
     Dosage: UNK
  5. METHYLPREDNISOLON [METHYLPREDNISOLONE] [Concomitant]
     Active Substance: METHYLPREDNISOLONE
     Indication: UVEITIS
     Dosage: 1 G, QD
     Route: 042
  6. MOMETASON [Concomitant]
     Active Substance: MOMETASONE FUROATE
     Dosage: 1 MG/G
  7. HYALURON [HYALURONATE SODIUM] [Concomitant]
     Dosage: EYE DROPS, 0.15 / 0.15 MG / ML
  8. TACROLIMUS. [Concomitant]
     Active Substance: TACROLIMUS
     Dosage: 1 MG/G
  9. ULTRACORTENOL [PREDNISOLONE ACETATE] [Concomitant]
     Indication: CYTOMEGALOVIRUS INFECTION
  10. ZADITEN [Concomitant]
     Active Substance: KETOTIFEN FUMARATE
     Dosage: EYE DROPS, 0.25 MG / ML
  11. PRED FORTE [Concomitant]
     Active Substance: PREDNISOLONE ACETATE
     Indication: UVEITIS
     Dosage: UNK UNK, QID
  12. METHYLPREDNISOLON [METHYLPREDNISOLONE] [Concomitant]
     Active Substance: METHYLPREDNISOLONE
     Indication: CYTOMEGALOVIRUS INFECTION
  13. BETAMETHASONE. [Concomitant]
     Active Substance: BETAMETHASONE
     Dosage: 0.5 MG/G

REACTIONS (5)
  - Myalgia [Not Recovered/Not Resolved]
  - Arthralgia [Not Recovered/Not Resolved]
  - Conjunctivitis [Unknown]
  - Cytomegalovirus infection [Unknown]
  - Uveitis [Not Recovered/Not Resolved]

NARRATIVE: CASE EVENT DATE: 20200324
